FAERS Safety Report 4678381-3 (Version None)
Quarter: 2005Q2

REPORT INFORMATION
  Report Type: 
  Country: None (occurrence: None)
  Receive Date: 20050531
  Receipt Date: 20050531
  Transmission Date: 20051028
  Serious: Yes (Life-Threatening, Disabling, Other)
  Sender: FDA-Public Use
  Company Number: None

PATIENT
  Age: 20 Year
  Sex: Male
  Weight: 68.0396 kg

DRUGS (1)
  1. ZOLOFT [Suspect]
     Indication: DEPRESSION
     Dosage: 100 MG DAILY ORAL
     Route: 048
     Dates: start: 20030117, end: 20030617

REACTIONS (11)
  - AGORAPHOBIA [None]
  - BIPOLAR DISORDER [None]
  - DEPRESSION [None]
  - DEPRESSION SUICIDAL [None]
  - EUPHORIC MOOD [None]
  - HALLUCINATION, VISUAL [None]
  - HYPOMANIA [None]
  - MENTAL DISORDER [None]
  - PANIC ATTACK [None]
  - PARANOIA [None]
  - SOCIAL PHOBIA [None]
